FAERS Safety Report 9681330 (Version 1)
Quarter: 2013Q4

REPORT INFORMATION
  Report Type: Spontaneous
  Country: US (occurrence: None)
  Receive Date: 20131108
  Receipt Date: 20131108
  Transmission Date: 20140711
  Serious: Yes (Hospitalization, Disabling, Other)
  Sender: FDA-Public Use
  Company Number: None

PATIENT
  Age: 42 Year
  Sex: Female
  Weight: 70.31 kg

DRUGS (2)
  1. ZOLOFT [Suspect]
     Indication: DEPRESSION
     Route: 048
     Dates: start: 20030922, end: 20131107
  2. ZOLOFT [Suspect]
     Indication: ANXIETY
     Route: 048
     Dates: start: 20030922, end: 20131107

REACTIONS (14)
  - Tachyphrenia [None]
  - Fear [None]
  - Confusional state [None]
  - Thinking abnormal [None]
  - Delusion [None]
  - Asthenia [None]
  - Blood glucose abnormal [None]
  - Bipolar disorder [None]
  - Mania [None]
  - Depression [None]
  - Anxiety [None]
  - Feeling abnormal [None]
  - Activities of daily living impaired [None]
  - Overdose [None]
